FAERS Safety Report 25477005 (Version 1)
Quarter: 2025Q2

REPORT INFORMATION
  Report Type: Spontaneous
  Country: CN (occurrence: CN)
  Receive Date: 20250625
  Receipt Date: 20250625
  Transmission Date: 20250717
  Serious: Yes (Life-Threatening)
  Sender: GE HEALTHCARE
  Company Number: None

PATIENT
  Age: 27 Year
  Sex: Female
  Weight: 48 kg

DRUGS (2)
  1. OMNIPAQUE [Suspect]
     Active Substance: IOHEXOL
     Indication: Computerised tomogram venography
     Route: 042
     Dates: start: 20250612, end: 20250612
  2. OMNIPAQUE [Suspect]
     Active Substance: IOHEXOL
     Indication: Portal shunt procedure
     Route: 042
     Dates: start: 20250612, end: 20250612

REACTIONS (12)
  - Brain oedema [Recovering/Resolving]
  - Mydriasis [Recovering/Resolving]
  - Pupillary reflex impaired [Recovering/Resolving]
  - Cardiac arrest [Recovering/Resolving]
  - Respiratory arrest [Recovering/Resolving]
  - Generalised tonic-clonic seizure [Recovering/Resolving]
  - Anaphylactic shock [Recovering/Resolving]
  - Laryngeal oedema [Recovering/Resolving]
  - Hypotension [Recovering/Resolving]
  - Heart rate decreased [Recovering/Resolving]
  - Hypoxic-ischaemic encephalopathy [Recovering/Resolving]
  - Contrast encephalopathy [Recovering/Resolving]

NARRATIVE: CASE EVENT DATE: 20250612
